FAERS Safety Report 4936971-4 (Version None)
Quarter: 2006Q1

REPORT INFORMATION
  Report Type: 
  Country: None (occurrence: None)
  Receive Date: 20060309
  Receipt Date: 20060224
  Transmission Date: 20060701
  Serious: Yes (Other)
  Sender: FDA-Public Use
  Company Number: JP-ROCHE-438288

PATIENT
  Age: 80 Year
  Sex: Female

DRUGS (1)
  1. TAMIFLU [Suspect]
     Route: 048
     Dates: start: 20060217, end: 20060218

REACTIONS (3)
  - BLOOD CREATINE PHOSPHOKINASE INCREASED [None]
  - RENAL FAILURE [None]
  - RHABDOMYOLYSIS [None]
